FAERS Safety Report 24964626 (Version 1)
Quarter: 2025Q1

REPORT INFORMATION
  Report Type: Spontaneous
  Country: FR (occurrence: FR)
  Receive Date: 20250213
  Receipt Date: 20250213
  Transmission Date: 20250409
  Serious: Yes (Other)
  Sender: Haleon PLC
  Company Number: FR-KENVUE-20241029572

PATIENT
  Sex: Female

DRUGS (1)
  1. NICORETTE [Suspect]
     Active Substance: NICOTINE
     Indication: Ex-tobacco user
     Dosage: 10 DOSAGE FORM PER DAY
     Route: 065

REACTIONS (1)
  - Drug dependence [Unknown]
